FAERS Safety Report 17013547 (Version 1)
Quarter: 2019Q4

REPORT INFORMATION
  Report Type: Report from Study
  Country: IN (occurrence: IN)
  Receive Date: 20191110
  Receipt Date: 20191110
  Transmission Date: 20200122
  Serious: Yes (Death, Other)
  Sender: FDA-Public Use
  Company Number: PHHY2019IN059399

PATIENT
  Age: 43 Year
  Sex: Male
  Weight: 108 kg

DRUGS (2)
  1. VYMADA [Suspect]
     Active Substance: SACUBITRIL\VALSARTAN
     Indication: CARDIAC FAILURE CHRONIC
     Dosage: 0.5 DF, BID (100 MG, 1/2 BID)
     Route: 048
     Dates: start: 20190304
  2. VYMADA [Suspect]
     Active Substance: SACUBITRIL\VALSARTAN
     Indication: CARDIAC FAILURE

REACTIONS (4)
  - Wrong technique in product usage process [Unknown]
  - Product prescribing error [Unknown]
  - Congestive cardiomyopathy [Fatal]
  - Coma [Unknown]

NARRATIVE: CASE EVENT DATE: 20190304
